FAERS Safety Report 18422679 (Version 5)
Quarter: 2020Q4

REPORT INFORMATION
  Report Type: Spontaneous
  Country: US (occurrence: US)
  Receive Date: 20201023
  Receipt Date: 20201221
  Transmission Date: 20210114
  Serious: No
  Sender: FDA-Public Use
  Company Number: US-PFIZER INC-2020411379

PATIENT
  Age: 60 Year
  Sex: Female

DRUGS (2)
  1. IBRANCE [Suspect]
     Active Substance: PALBOCICLIB
     Dosage: 100 MG, CYCLIC (TAKE 1 PO (ORAL) QD (ONCE A DAY) FOR 21 DAYS OFF 7 DAYS)
     Route: 048
     Dates: start: 20191025, end: 20200715
  2. IBRANCE [Suspect]
     Active Substance: PALBOCICLIB
     Indication: BREAST CANCER FEMALE
     Dosage: 100 MG, CYCLIC (TAKE 1 PO (ORAL) QD (ONCE A DAY) FOR 21 DAYS OFF 7 DAYS)
     Route: 048
     Dates: start: 20170829

REACTIONS (1)
  - Mass [Not Recovered/Not Resolved]
